FAERS Safety Report 7824614-1 (Version None)
Quarter: 2011Q4

REPORT INFORMATION
  Report Type: 
  Country: None (occurrence: None)
  Receive Date: 20111019
  Receipt Date: 20111014
  Transmission Date: 20120403
  Serious: Yes (Hospitalization, Other)
  Sender: FDA-Public Use
  Company Number: JP-SHIRE-ALL1-2011-01272

PATIENT
  Age: 68 Year
  Sex: Male

DRUGS (15)
  1. CINACALCET HYDROCHLORIDE [Concomitant]
     Indication: HYPERPARATHYROIDISM SECONDARY
     Dosage: 100 MG, UNKNOWN
     Route: 048
     Dates: start: 20100120
  2. ALLOPURINOL [Concomitant]
     Indication: PRODUCT USED FOR UNKNOWN INDICATION
     Dosage: 100 MG, UNKNOWN
     Route: 048
  3. CINACALCET HYDROCHLORIDE [Concomitant]
     Dosage: 75 MG, UNKNOWN
     Route: 048
     Dates: start: 20110706, end: 20110809
  4. LANTHANUM CARBONATE [Suspect]
     Indication: HYPERPHOSPHATAEMIA
     Dosage: 750 MG, OTHER (IMMEDIATELY AFTER MEALS)
     Route: 048
     Dates: start: 20100908
  5. SEVELAMER HYDROCHLORIDE [Suspect]
     Indication: HYPERPHOSPHATAEMIA
     Dosage: 3000 MG, 1X/DAY:QD
     Route: 048
     Dates: start: 20100420
  6. OXAROL [Concomitant]
     Indication: PRODUCT USED FOR UNKNOWN INDICATION
     Dosage: 22.5 ?G, 1X/WEEK
     Route: 042
     Dates: start: 20100113, end: 20101004
  7. LANTHANUM CARBONATE [Suspect]
     Dosage: 500 MG, UNKNOWN
     Route: 048
     Dates: start: 20110322
  8. RABEPRAZOLE SODIUM [Concomitant]
     Indication: PRODUCT USED FOR UNKNOWN INDICATION
     Dosage: 10 MG, UNKNOWN
     Route: 048
  9. WARFARIN SODIUM [Suspect]
     Indication: HYPERPHOSPHATAEMIA
     Dosage: 3 MG, 1X/DAY:QD
     Route: 048
     Dates: end: 20110406
  10. OXAROL [Concomitant]
     Dosage: 15 ?G, 1X/WEEK
     Route: 042
     Dates: start: 20101006
  11. CINACALCET HYDROCHLORIDE [Concomitant]
     Dosage: 50 MG, UNKNOWN
     Route: 048
     Dates: start: 20110810
  12. OXAROL [Concomitant]
     Dosage: 7.5 ?G, 1X/WEEK
     Route: 042
     Dates: start: 20110511
  13. LANIRAPID [Concomitant]
     Indication: PRODUCT USED FOR UNKNOWN INDICATION
     Dosage: 0.05 MG, UNKNOWN
     Route: 048
  14. NESPO [Concomitant]
     Indication: PRODUCT USED FOR UNKNOWN INDICATION
     Dosage: 10 ?G, UNKNOWN
     Route: 042
     Dates: start: 20100906
  15. PRECIPITATED CALCIUM CARBONATE [Concomitant]
     Indication: HYPERPHOSPHATAEMIA
     Dosage: 500 MG, UNKNOWN
     Route: 048
     Dates: start: 20110525

REACTIONS (4)
  - HYPOTHYROIDISM [None]
  - ANASTOMOTIC ULCER [None]
  - ANGINA PECTORIS [None]
  - ANAEMIA [None]
